FAERS Safety Report 9215071 (Version 1)
Quarter: 2013Q2

REPORT INFORMATION
  Report Type: Not Available
  Country: NL (occurrence: NL)
  Receive Date: 20130405
  Receipt Date: 20130405
  Transmission Date: 20140414
  Serious: Yes (Hospitalization)
  Sender: FDA-Public Use
  Company Number: NL-PURDUE-GBR-2013-0013621

PATIENT
  Age: 91 Year
  Sex: Male

DRUGS (6)
  1. BUTRANS [Suspect]
     Indication: PAIN
     Dosage: 2 X 5 MCG, Q1H
     Route: 062
     Dates: start: 201210, end: 20121025
  2. BUTRANS [Suspect]
     Indication: PUBIS FRACTURE
  3. CODEINE [Concomitant]
     Dosage: 20 MG, TID
  4. BISOPROLOL [Concomitant]
     Dosage: 2.5 MG, BID
  5. HYDROCHLOORTHIAZIDE [Concomitant]
     Dosage: 12.5 MG, DAILY
  6. METOCLOPRAMIDE HYDROCHLORIDE [Concomitant]
     Dosage: 1 DF, TID

REACTIONS (1)
  - Delirium [Recovered/Resolved]
